FAERS Safety Report 7030893-3 (Version None)
Quarter: 2010Q4

REPORT INFORMATION
  Report Type: 
  Country: None (occurrence: None)
  Receive Date: 20101001
  Receipt Date: 20100915
  Transmission Date: 20110411
  Serious: Yes (Other)
  Sender: FDA-Public Use
  Company Number: ALA_00754_2010

PATIENT
  Age: 59 Year
  Sex: Female

DRUGS (3)
  1. COLONIX ADVANCED INTERNAL CLEANSING PROGRAM [Suspect]
     Indication: DETOXIFICATION
     Dosage: (DF ORAL)
     Route: 048
     Dates: start: 20100730, end: 20100905
  2. TOXINOUT BROAD-SPECTRUM DETOXIFICATION PROGRAM [Suspect]
     Indication: DETOXIFICATION
     Dosage: (DF ORAL)
     Route: 048
     Dates: start: 20100730, end: 20100905
  3. LEVOTHYROXINE [Concomitant]

REACTIONS (26)
  - ABDOMINAL DISTENSION [None]
  - APHONIA [None]
  - CHILLS [None]
  - DEPRESSION [None]
  - DIZZINESS [None]
  - DRUG INEFFECTIVE [None]
  - DRY MOUTH [None]
  - DYSGEUSIA [None]
  - EYE PAIN [None]
  - EYE SWELLING [None]
  - FATIGUE [None]
  - FEELING ABNORMAL [None]
  - FLATULENCE [None]
  - GASTROOESOPHAGEAL REFLUX DISEASE [None]
  - HEADACHE [None]
  - HEARING IMPAIRED [None]
  - HYPOAESTHESIA [None]
  - INFLAMMATION [None]
  - INFLUENZA LIKE ILLNESS [None]
  - LOSS OF LIBIDO [None]
  - MUSCULAR WEAKNESS [None]
  - NAUSEA [None]
  - OEDEMA PERIPHERAL [None]
  - PARAESTHESIA [None]
  - TOOTHACHE [None]
  - VISION BLURRED [None]
